FAERS Safety Report 5831210-4 (Version None)
Quarter: 2008Q3

REPORT INFORMATION
  Report Type: 
  Country: None (occurrence: None)
  Receive Date: 20080801
  Receipt Date: 20080529
  Transmission Date: 20090109
  Serious: No
  Sender: FDA-Public Use
  Company Number: US-BRISTOL-MYERS SQUIBB COMPANY-14208920

PATIENT
  Age: 55 Year
  Sex: Female
  Weight: 90 kg

DRUGS (2)
  1. COUMADIN [Suspect]
     Indication: ATRIAL FIBRILLATION
     Dosage: DOSE INCREASED TO 7.5MG DAILY
     Dates: start: 20080401
  2. COUMADIN [Suspect]
     Indication: PULMONARY THROMBOSIS
     Dosage: DOSE INCREASED TO 7.5MG DAILY
     Dates: start: 20080401

REACTIONS (1)
  - INTERNATIONAL NORMALISED RATIO DECREASED [None]
